FAERS Safety Report 6306959-X (Version None)
Quarter: 2009Q3

REPORT INFORMATION
  Report Type: 
  Country: None (occurrence: None)
  Receive Date: 20090810
  Receipt Date: 20090806
  Transmission Date: 20100115
  Serious: Yes (Other)
  Sender: FDA-Public Use
  Company Number: 09GB002958

PATIENT
  Age: 56 Year
  Sex: Female

DRUGS (2)
  1. CETIRIZINE HCL [Suspect]
     Indication: DRUG USE FOR UNKNOWN INDICATION
     Dosage: 10 MG, SINGLE, ORAL
     Route: 048
     Dates: start: 20090601, end: 20090601
  2. VENTOLIN [Concomitant]

REACTIONS (1)
  - SUICIDAL IDEATION [None]
